FAERS Safety Report 16730061 (Version 1)
Quarter: 2019Q3

REPORT INFORMATION
  Report Type: Report from Study
  Country: AT (occurrence: AT)
  Receive Date: 20190822
  Receipt Date: 20190822
  Transmission Date: 20191005
  Serious: Yes (Hospitalization)
  Sender: FDA-Public Use
  Company Number: AT-PACIRA-201400097

PATIENT
  Age: 9 Year
  Sex: Male
  Weight: 25.5 kg

DRUGS (14)
  1. CELECOXIB. [Concomitant]
     Active Substance: CELECOXIB
     Dosage: 400 MG, DAILY, FREQUENCY : DAILY
     Route: 048
     Dates: start: 20140626
  2. FENOFIBRATE. [Concomitant]
     Active Substance: FENOFIBRATE
     Dosage: 100 MG, DAILY, FREQUENCY : DAILY
     Route: 048
     Dates: start: 20140626
  3. OLEOVIT D3 [Concomitant]
     Active Substance: CHOLECALCIFEROL
     Dosage: 2 GTT, DAILY, FREQUENCY : DAILY
     Route: 048
     Dates: start: 20140626
  4. ETOPOSIDE. [Concomitant]
     Active Substance: ETOPOSIDE
     Dosage: 30.68 MG, DAILY, FREQUENCY : DAILY
     Route: 048
     Dates: start: 20141030
  5. DEPOCYT [Suspect]
     Active Substance: CYTARABINE
     Indication: MEDULLOBLASTOMA RECURRENT
     Dosage: 35 MG EVERY 4 WEEKS, INTRAVENTRICULAR
     Dates: start: 20140717, end: 20140910
  6. ETOPOSIDE. [Concomitant]
     Active Substance: ETOPOSIDE
     Dosage: 0.5 MG EVERY 4 WEEKS, INTRAVENTRICULAR
     Dates: start: 20140626
  7. LIDAPRIM [Concomitant]
     Dosage: 80 MG TWICE DAILY TUESDAY-THURSDAY
     Route: 048
     Dates: start: 20140624
  8. DEPOCYT [Suspect]
     Active Substance: CYTARABINE
     Indication: MEDULLOBLASTOMA RECURRENT
  9. ZOFRAN [Concomitant]
     Active Substance: ONDANSETRON HYDROCHLORIDE
     Dosage: 4 MG, DAILY, FREQUENCY : DAILY
     Route: 048
     Dates: start: 20141030
  10. ETOPOSIDE. [Concomitant]
     Active Substance: ETOPOSIDE
     Dosage: 46.49 MG, DAILY, FREQUENCY : DAILY
     Route: 048
     Dates: start: 20140918
  11. MAGNESIUM [Concomitant]
     Active Substance: MAGNESIUM
     Dosage: 60 MG, DAILY, FREQUENCY : DAILY
     Route: 048
     Dates: start: 20140926
  12. DEXAMETHASONE. [Concomitant]
     Active Substance: DEXAMETHASONE
     Dosage: 2 MG, DAILY, FREQUENCY : DAILY
     Route: 048
     Dates: start: 20140910
  13. THALIDOMIDE [Concomitant]
     Active Substance: THALIDOMIDE
     Dosage: 25 MG, DAILY, FREQUENCY : DAILY
     Route: 048
     Dates: start: 20140626
  14. DUROTIV [Concomitant]
     Active Substance: ESOMEPRAZOLE
     Dosage: 20 MG, DAILY, FREQUENCY : DAILY
     Route: 048
     Dates: start: 20140910

REACTIONS (1)
  - Enterovirus infection [Recovered/Resolved with Sequelae]

NARRATIVE: CASE EVENT DATE: 20141002
